FAERS Safety Report 5425129-0 (Version None)
Quarter: 2007Q3

REPORT INFORMATION
  Report Type: 
  Country: None (occurrence: None)
  Receive Date: 20070824
  Receipt Date: 20070816
  Transmission Date: 20080115
  Serious: Yes (Other)
  Sender: FDA-Public Use
  Company Number: US-ROCHE-478636

PATIENT
  Age: 51 Year
  Sex: Female
  Weight: 83.9 kg

DRUGS (5)
  1. PEGASYS [Suspect]
     Indication: HEPATITIS C
     Route: 065
     Dates: start: 20061118, end: 20070217
  2. PEGASYS [Suspect]
     Route: 065
     Dates: start: 20070224
  3. COPEGUS [Suspect]
     Indication: HEPATITIS C
     Route: 048
     Dates: start: 20061118
  4. METHADONE HCL [Concomitant]
     Indication: PAIN
  5. EFFEXOR [Concomitant]

REACTIONS (11)
  - BLOOD THYROID STIMULATING HORMONE DECREASED [None]
  - BRONCHITIS [None]
  - CHOLECYSTITIS [None]
  - CHOLELITHIASIS [None]
  - MALAISE [None]
  - NAUSEA [None]
  - PAIN IN EXTREMITY [None]
  - PRODUCTIVE COUGH [None]
  - RASH PAPULAR [None]
  - STOMATITIS [None]
  - WHITE BLOOD CELL COUNT DECREASED [None]
